FAERS Safety Report 7491980-9 (Version None)
Quarter: 2011Q2

REPORT INFORMATION
  Report Type: 
  Country: None (occurrence: None)
  Receive Date: 20110519
  Receipt Date: 20110507
  Transmission Date: 20111010
  Serious: Yes (Other)
  Sender: FDA-Public Use
  Company Number: US-JNJFOC-20110505379

PATIENT
  Age: 49 Year
  Sex: Female
  Weight: 61.24 kg

DRUGS (2)
  1. ZYRTEC ALLERGY [Suspect]
     Indication: RHINORRHOEA
     Route: 048
     Dates: start: 20110401, end: 20110507
  2. ZYRTEC ALLERGY [Suspect]
     Route: 048

REACTIONS (2)
  - EXPIRED DRUG ADMINISTERED [None]
  - DYSURIA [None]
